FAERS Safety Report 14144774 (Version 1)
Quarter: 2017Q4

REPORT INFORMATION
  Report Type: Spontaneous
  Country: US (occurrence: US)
  Receive Date: 20171031
  Receipt Date: 20171031
  Transmission Date: 20180321
  Serious: No
  Sender: FDA-Public Use
  Company Number: US-VERTEX PHARMACEUTICALS-2017-005919

PATIENT
  Sex: Female

DRUGS (13)
  1. PROBIOTIC                          /06395501/ [Concomitant]
     Active Substance: BIFIDOBACTERIUM ANIMALIS LACTIS
  2. BUDESONIDE. [Concomitant]
     Active Substance: BUDESONIDE
  3. CITRACAL + D                       /01438101/ [Concomitant]
  4. OSELTAMIVIR PHOSPHATE. [Concomitant]
     Active Substance: OSELTAMIVIR PHOSPHATE
  5. PULMOZYME [Concomitant]
     Active Substance: DORNASE ALFA
  6. NEXIUM [Concomitant]
     Active Substance: ESOMEPRAZOLE MAGNESIUM
  7. CAYSTON [Concomitant]
     Active Substance: AZTREONAM
  8. BENZONATATE. [Concomitant]
     Active Substance: BENZONATATE
  9. FLUTICASONE PROPIONATE. [Concomitant]
     Active Substance: FLUTICASONE PROPIONATE
  10. PREDNISONE. [Concomitant]
     Active Substance: PREDNISONE
  11. LINEZOLID. [Concomitant]
     Active Substance: LINEZOLID
  12. KALYDECO [Suspect]
     Active Substance: IVACAFTOR
     Indication: CYSTIC FIBROSIS
     Dosage: 1 DOSAGE FORM, BID
     Route: 048
  13. MELATONIN [Concomitant]
     Active Substance: MELATONIN

REACTIONS (1)
  - Cystic fibrosis [Unknown]
